FAERS Safety Report 5972834-3 (Version None)
Quarter: 2008Q4

REPORT INFORMATION
  Report Type: 
  Country: None (occurrence: None)
  Receive Date: 20081126
  Receipt Date: 20081126
  Transmission Date: 20090506
  Serious: Yes (Other)
  Sender: FDA-Public Use
  Company Number: None

PATIENT
  Sex: Female
  Weight: 49.8957 kg

DRUGS (2)
  1. LAMOTRIGINE [Suspect]
     Indication: BIPOLAR DISORDER
     Dosage: 75MG -HALF A TABLET- 1X/DAY PO
     Route: 048
     Dates: start: 20081121, end: 20081124
  2. AMPHETAMINE -GENERIC ADDERALL- [Concomitant]

REACTIONS (5)
  - AFFECTIVE DISORDER [None]
  - BIPOLAR DISORDER [None]
  - HEADACHE [None]
  - MOOD ALTERED [None]
  - THERAPEUTIC RESPONSE UNEXPECTED WITH DRUG SUBSTITUTION [None]
